FAERS Safety Report 20968221 (Version 1)
Quarter: 2022Q2

REPORT INFORMATION
  Report Type: Spontaneous
  Country: IN (occurrence: IN)
  Receive Date: 20220616
  Receipt Date: 20220616
  Transmission Date: 20220721
  Serious: Yes (Other)
  Sender: FDA-Public Use
  Company Number: IN-PFIZER INC-202101068084

PATIENT
  Age: 68 Year
  Sex: Male

DRUGS (6)
  1. INOTUZUMAB OZOGAMICIN [Suspect]
     Active Substance: INOTUZUMAB OZOGAMICIN
     Dosage: 1 MG
     Route: 042
     Dates: start: 20210802
  2. INOTUZUMAB OZOGAMICIN [Suspect]
     Active Substance: INOTUZUMAB OZOGAMICIN
     Dosage: 1 MG
     Dates: start: 20210809
  3. INOTUZUMAB OZOGAMICIN [Suspect]
     Active Substance: INOTUZUMAB OZOGAMICIN
     Dosage: 1 MG
     Dates: start: 20210816
  4. INOTUZUMAB OZOGAMICIN [Suspect]
     Active Substance: INOTUZUMAB OZOGAMICIN
     Dosage: 0.8 MG
  5. INOTUZUMAB OZOGAMICIN [Suspect]
     Active Substance: INOTUZUMAB OZOGAMICIN
     Dosage: 0.6 MG
     Route: 042
  6. DASATINIB [Suspect]
     Active Substance: DASATINIB
     Dosage: UNK

REACTIONS (5)
  - Vascular device infection [Unknown]
  - COVID-19 [Recovered/Resolved]
  - Klebsiella infection [Unknown]
  - Pleural effusion [Unknown]
  - Oedema peripheral [Unknown]
